FAERS Safety Report 8485876-3 (Version None)
Quarter: 2012Q3

REPORT INFORMATION
  Report Type: 
  Country: None (occurrence: None)
  Receive Date: 20120703
  Receipt Date: 20120629
  Transmission Date: 20120928
  Serious: Yes (Hospitalization, Other)
  Sender: FDA-Public Use
  Company Number: PHHY2012FR051054

PATIENT
  Sex: Female
  Weight: 65 kg

DRUGS (7)
  1. XANAX [Concomitant]
     Indication: ANXIETY
     Dosage: 0.25 MG, TID
     Dates: start: 20070101
  2. GILENYA [Suspect]
     Dosage: 06 MG, UNK
     Route: 048
     Dates: start: 20120610
  3. AMANTADINE HCL [Concomitant]
     Indication: FATIGUE
     Dosage: 1 DF, DAY
     Dates: start: 20070101
  4. EFFEXOR [Concomitant]
     Indication: DEPRESSION
     Dosage: 75 MG, BID
     Dates: start: 20070101
  5. ALFUZOSIN HCL [Concomitant]
     Indication: URINARY TRACT DISORDER
     Dosage: 10 MG, DAILY
  6. GILENYA [Suspect]
     Indication: MULTIPLE SCLEROSIS
     Dosage: 0.5 MG, QD
     Route: 048
     Dates: start: 20120327
  7. ANALGESICS [Concomitant]
     Dosage: UNK UKN, UNK

REACTIONS (4)
  - SUICIDE ATTEMPT [None]
  - INTENTIONAL OVERDOSE [None]
  - ALANINE AMINOTRANSFERASE INCREASED [None]
  - LYMPHOCYTE COUNT DECREASED [None]
